FAERS Safety Report 23439686 (Version 1)
Quarter: 2024Q1

REPORT INFORMATION
  Report Type: Spontaneous
  Country: AU (occurrence: AU)
  Receive Date: 20240124
  Receipt Date: 20240124
  Transmission Date: 20240409
  Serious: Yes (Other)
  Sender: FDA-Public Use
  Company Number: AU-ORGANON-O2401AUS001909

PATIENT
  Age: 27 Year
  Sex: Female

DRUGS (8)
  1. DIPROSONE [Suspect]
     Active Substance: BETAMETHASONE DIPROPIONATE
     Dosage: UNK
  2. ELOCON [Suspect]
     Active Substance: MOMETASONE FUROATE
     Dosage: UNK
  3. BETNOVATE [Suspect]
     Active Substance: BETAMETHASONE
     Dosage: UNK
  4. HYDROCORTISONE ACETATE [Suspect]
     Active Substance: HYDROCORTISONE ACETATE
     Dosage: UNK
  5. HYDROCORTISONE [Suspect]
     Active Substance: HYDROCORTISONE
     Dosage: UNK
  6. HYDROCORTISONE ACETATE [Suspect]
     Active Substance: HYDROCORTISONE ACETATE
     Dosage: UNK
  7. FUSIDIC ACID [Concomitant]
     Active Substance: FUSIDIC ACID
     Dosage: UNK
  8. BACTROBAN [Concomitant]
     Active Substance: MUPIROCIN CALCIUM
     Dosage: UNK

REACTIONS (12)
  - Blister [Not Recovered/Not Resolved]
  - Insomnia [Not Recovered/Not Resolved]
  - Muscle spasms [Not Recovered/Not Resolved]
  - Oedema [Not Recovered/Not Resolved]
  - Paraesthesia [Not Recovered/Not Resolved]
  - Pruritus [Unknown]
  - Rash [Not Recovered/Not Resolved]
  - Skin atrophy [Unknown]
  - Skin exfoliation [Not Recovered/Not Resolved]
  - Skin weeping [Not Recovered/Not Resolved]
  - Temperature regulation disorder [Not Recovered/Not Resolved]
  - Topical steroid withdrawal reaction [Not Recovered/Not Resolved]
